FAERS Safety Report 8347805-2 (Version None)
Quarter: 2012Q2

REPORT INFORMATION
  Report Type: 
  Country: None (occurrence: None)
  Receive Date: 20120509
  Receipt Date: 20120501
  Transmission Date: 20120825
  Serious: Yes (Hospitalization, Congenital Anomaly)
  Sender: FDA-Public Use
  Company Number: US-GLAXOSMITHKLINE-A0976796A

PATIENT
  Sex: Female
  Weight: 2.6 kg

DRUGS (4)
  1. AMBIEN [Concomitant]
  2. PAXIL [Suspect]
     Indication: DEPRESSION
     Dosage: 20MG PER DAY
     Route: 064
  3. MULTI-VITAMINS [Concomitant]
  4. DARVOCET [Concomitant]

REACTIONS (2)
  - TALIPES [None]
  - FOETAL EXPOSURE DURING PREGNANCY [None]
